FAERS Safety Report 7034440-1 (Version None)
Quarter: 2010Q4

REPORT INFORMATION
  Report Type: 
  Country: None (occurrence: None)
  Receive Date: 20101008
  Receipt Date: 20101004
  Transmission Date: 20110411
  Serious: Yes (Death, Hospitalization, Other)
  Sender: FDA-Public Use
  Company Number: FR-ASTRAZENECA-2010SE43002

PATIENT
  Age: 1035 Month
  Sex: Female

DRUGS (7)
  1. CANDESARTAN CILEXETIL/HYDROCHLOROTHIAZIDE (ATACAND HCT) [Suspect]
     Indication: HYPERTENSION
     Route: 048
     Dates: end: 20100827
  2. LASIX [Suspect]
     Indication: RENAL FAILURE CHRONIC
     Route: 048
     Dates: end: 20100801
  3. FENOFIBRATE [Concomitant]
  4. KARDEGIC [Concomitant]
  5. NITRODERM [Concomitant]
  6. SPASFON [Concomitant]
  7. TROXERUTIN [Concomitant]

REACTIONS (8)
  - CIRCULATORY COLLAPSE [None]
  - COLITIS ISCHAEMIC [None]
  - DIARRHOEA [None]
  - HYPOVOLAEMIC SHOCK [None]
  - OVERDOSE [None]
  - RENAL FAILURE [None]
  - SHOCK [None]
  - VOMITING [None]
